FAERS Safety Report 20210475 (Version 2)
Quarter: 2022Q1

REPORT INFORMATION
  Report Type: Spontaneous
  Country: IE (occurrence: IE)
  Receive Date: 20211221
  Receipt Date: 20220218
  Transmission Date: 20220424
  Serious: Yes (Other)
  Sender: FDA-Public Use
  Company Number: None

PATIENT
  Age: 76 Year
  Sex: Female

DRUGS (1)
  1. CLARITHROMYCIN [Suspect]
     Active Substance: CLARITHROMYCIN
     Indication: Lower respiratory tract infection
     Dosage: 1000 MILLIGRAM DAILY; 2 DOSES 500 MGS A DAY,UNIT DOSE:500MILLIGRAM,CLARITHROMYCIN 500 MG FILM-COATED
     Route: 048
     Dates: start: 20211102, end: 20211105

REACTIONS (5)
  - Balance disorder [Recovered/Resolved]
  - Dizziness [Recovered/Resolved]
  - Headache [Recovered/Resolved]
  - Hallucinations, mixed [Recovered/Resolved]
  - Visual impairment [Recovered/Resolved]

NARRATIVE: CASE EVENT DATE: 20211101
